FAERS Safety Report 18307427 (Version 1)
Quarter: 2020Q3

REPORT INFORMATION
  Report Type: Spontaneous
  Country: US (occurrence: US)
  Receive Date: 20200924
  Receipt Date: 20200924
  Transmission Date: 20201103
  Serious: Yes (Hospitalization)
  Sender: FDA-Public Use
  Company Number: None

PATIENT
  Age: 18 Year
  Sex: Female

DRUGS (2)
  1. PERPHENAZINE. [Suspect]
     Active Substance: PERPHENAZINE
     Indication: PSYCHOTIC DISORDER
     Route: 048
     Dates: start: 20200811, end: 20200905
  2. TRILAFON [Concomitant]
     Active Substance: PERPHENAZINE

REACTIONS (2)
  - Neuroleptic malignant syndrome [None]
  - Rhabdomyolysis [None]

NARRATIVE: CASE EVENT DATE: 20200905
